FAERS Safety Report 13830759 (Version 2)
Quarter: 2017Q3

REPORT INFORMATION
  Report Type: Spontaneous
  Country: ES (occurrence: ES)
  Receive Date: 20170803
  Receipt Date: 20170814
  Transmission Date: 20171127
  Serious: Yes (Other)
  Sender: FDA-Public Use
  Company Number: ES-JNJFOC-20170610653

PATIENT
  Sex: Male

DRUGS (9)
  1. DARATUMUMAB [Suspect]
     Active Substance: DARATUMUMAB
     Indication: PLASMA CELL MYELOMA
     Dosage: CYCLE 3
     Route: 042
     Dates: end: 20170624
  2. EUTIROX [Concomitant]
     Active Substance: LEVOTHYROXINE SODIUM
     Route: 065
  3. DARATUMUMAB [Suspect]
     Active Substance: DARATUMUMAB
     Indication: PLASMA CELL MYELOMA
     Dosage: RECEIVED 11 DOSES OF THE DRUG IV (FIRST 8 WEEKLY DOSES AND THEN BIWEEKLY THREE DOSES)
     Route: 042
     Dates: start: 201703
  4. MONTELUKAST [Concomitant]
     Active Substance: MONTELUKAST SODIUM
     Route: 065
  5. OMEPRAZOLE. [Concomitant]
     Active Substance: OMEPRAZOLE
     Route: 065
  6. ACYCLOVIR. [Concomitant]
     Active Substance: ACYCLOVIR
     Route: 065
  7. LENALIDOMIDE [Suspect]
     Active Substance: LENALIDOMIDE
     Indication: PLASMA CELL MYELOMA
     Dosage: RECEIVED 11 DOSES OF THE DRUG IV (FIRST 8 WEEKLY DOSES AND THEN BIWEEKLY THREE DOSES)
     Route: 048
  8. DEXAMETHASONE. [Suspect]
     Active Substance: DEXAMETHASONE
     Indication: PLASMA CELL MYELOMA
     Dosage: RECEIVED 11 DOSES OF THE DRUG IV (FIRST 8 WEEKLY DOSES AND THEN BIWEEKLY THREE DOSES)
     Route: 065
  9. PREDNISONE. [Concomitant]
     Active Substance: PREDNISONE

REACTIONS (7)
  - Pneumonitis [Unknown]
  - Oedema [Recovered/Resolved]
  - Polyneuropathy [Unknown]
  - Bone pain [Unknown]
  - Disease progression [Unknown]
  - Arthralgia [Recovered/Resolved]
  - Inflammation [Unknown]
